FAERS Safety Report 4875025-2 (Version None)
Quarter: 2006Q1

REPORT INFORMATION
  Report Type: 
  Country: None (occurrence: None)
  Receive Date: 20060105
  Receipt Date: 20051229
  Transmission Date: 20060701
  Serious: Yes (Death)
  Sender: FDA-Public Use
  Company Number: GXKR2005US01944

PATIENT
  Age: 59 Year
  Sex: Female

DRUGS (3)
  1. CEFTRIAXONE [Suspect]
     Indication: BRONCHITIS
     Dosage: 1 GM, QD, INTRAMUSCULAR
     Route: 030
     Dates: start: 20051207
  2. STEROID (NO INGREDIENTS/SUBSTANCES) [Concomitant]
  3. CEFTRIAXONE [Suspect]

REACTIONS (1)
  - ANAPHYLACTIC SHOCK [None]
